FAERS Safety Report 15284371 (Version 1)
Quarter: 2018Q3

REPORT INFORMATION
  Report Type: Spontaneous
  Country: PL (occurrence: PL)
  Receive Date: 20180816
  Receipt Date: 20180816
  Transmission Date: 20181010
  Serious: Yes (Other)
  Sender: FDA-Public Use
  Company Number: PL-SA-2018SA112398

PATIENT
  Age: 57 Year
  Sex: Male
  Weight: 86 kg

DRUGS (17)
  1. FLUOXETINE [Suspect]
     Active Substance: FLUOXETINE HYDROCHLORIDE
     Indication: OFF LABEL USE
  2. DEPREXETIN [Suspect]
     Active Substance: FLUOXETINE HYDROCHLORIDE
     Indication: FIBROMYALGIA
     Dosage: 20 MG,BID
     Route: 048
     Dates: start: 20171103, end: 20171122
  3. ZOLPIDEM TARTRATE. [Suspect]
     Active Substance: ZOLPIDEM TARTRATE
     Indication: DIABETES MELLITUS
  4. ZOLPIDEM TARTRATE. [Suspect]
     Active Substance: ZOLPIDEM TARTRATE
     Indication: SLEEP DISORDER
     Dosage: 10 MG,HS
     Route: 048
     Dates: start: 20171122, end: 20171124
  5. DEPREXETIN [Suspect]
     Active Substance: FLUOXETINE HYDROCHLORIDE
     Indication: DIABETES MELLITUS
  6. BISOCARD [Concomitant]
     Active Substance: BISOPROLOL
  7. PARACETAMOL [Concomitant]
     Active Substance: ACETAMINOPHEN
  8. ZOLPIDEM TARTRATE. [Suspect]
     Active Substance: ZOLPIDEM TARTRATE
     Indication: INSOMNIA
  9. DIAZEPAM. [Suspect]
     Active Substance: DIAZEPAM
     Indication: INITIAL INSOMNIA
     Dosage: 10 MG,HS
     Route: 065
  10. FLUOXETINE [Suspect]
     Active Substance: FLUOXETINE HYDROCHLORIDE
     Indication: FIBROMYALGIA
     Dosage: 40 MG
  11. ZOLPIDEM TARTRATE. [Suspect]
     Active Substance: ZOLPIDEM TARTRATE
     Indication: FIBROMYALGIA
  12. DIAZEPAM. [Suspect]
     Active Substance: DIAZEPAM
     Indication: NIGHTMARE
  13. MIANSERIN [Suspect]
     Active Substance: MIANSERIN
     Indication: NIGHTMARE
  14. METFORMIN [Concomitant]
     Active Substance: METFORMIN HYDROCHLORIDE
     Indication: BLOOD GLUCOSE FLUCTUATION
     Dosage: UNK UNK,UNK
     Route: 065
  15. SIMVASTATIN. [Concomitant]
     Active Substance: SIMVASTATIN
  16. ZOFENIL [Concomitant]
     Active Substance: ZOFENOPRIL
  17. MIANSERIN [Suspect]
     Active Substance: MIANSERIN
     Indication: INSOMNIA
     Dosage: 20 MG,HS
     Route: 065

REACTIONS (9)
  - Initial insomnia [Recovered/Resolved]
  - Blood glucose fluctuation [Recovered/Resolved]
  - Somnolence [Recovering/Resolving]
  - Poor quality sleep [Recovered/Resolved]
  - Drug interaction [Unknown]
  - Sleep disorder [Recovered/Resolved]
  - Nightmare [Recovered/Resolved]
  - Off label use [Unknown]
  - Dry mouth [Recovering/Resolving]
